FAERS Safety Report 9090455 (Version 2)
Quarter: 2013Q3

REPORT INFORMATION
  Report Type: Report from Study
  Country: US (occurrence: US)
  Receive Date: 20130131
  Receipt Date: 20130722
  Transmission Date: 20140515
  Serious: Yes (Other)
  Sender: FDA-Public Use
  Company Number: US-GILEAD-2013-0068498

PATIENT
  Age: 32 Year
  Sex: Female

DRUGS (5)
  1. EMTRICITABINE/TENOFOVIR DISOPROXIL FUMARATE [Suspect]
     Indication: HIV INFECTION
     Dosage: 1 DF, QD
     Route: 048
  2. FOSAMPRENAVIR [Suspect]
     Indication: HIV INFECTION
     Dosage: 1400 MG, QD
     Route: 048
  3. RITONAVIR [Suspect]
     Indication: HIV INFECTION
     Dosage: 100 MG, QD
     Route: 048
  4. ZIDOVUDINE [Suspect]
     Indication: HIV INFECTION
     Dosage: 600 MG, QD
     Route: 048
     Dates: start: 20111202, end: 20120315
  5. ZIDOVUDINE [Suspect]
     Indication: HIV INFECTION
     Dosage: 980 MG, QD
     Route: 042
     Dates: start: 20120315, end: 20120315

REACTIONS (3)
  - Epilepsy [Unknown]
  - Chlamydial infection [Unknown]
  - Pregnancy [Recovered/Resolved]
